FAERS Safety Report 5792389-6 (Version None)
Quarter: 2008Q2

REPORT INFORMATION
  Report Type: 
  Country: None (occurrence: None)
  Receive Date: 20080626
  Receipt Date: 20080228
  Transmission Date: 20081010
  Serious: Yes (Hospitalization)
  Sender: FDA-Public Use
  Company Number: KR-BAYER-200820520GPV

PATIENT
  Age: 7 Year
  Sex: Male

DRUGS (3)
  1. ASPIRIN [Suspect]
     Indication: CORONARY ARTERY ANEURYSM
     Route: 065
  2. IBUPROFEN [Interacting]
     Indication: JUVENILE ARTHRITIS
     Route: 065
  3. ANTIRHEUMATIC DRUG [Concomitant]
     Indication: JUVENILE ARTHRITIS

REACTIONS (1)
  - CORONARY ARTERY THROMBOSIS [None]
